FAERS Safety Report 5569349-3 (Version None)
Quarter: 2007Q4

REPORT INFORMATION
  Report Type: 
  Country: None (occurrence: None)
  Receive Date: 20071220
  Receipt Date: 20071218
  Transmission Date: 20080405
  Serious: Yes (Hospitalization)
  Sender: FDA-Public Use
  Company Number: FR-ELI_LILLY_AND_COMPANY-FR200712003482

PATIENT
  Sex: Female

DRUGS (6)
  1. ALIMTA [Suspect]
     Indication: LUNG CANCER METASTATIC
     Dosage: 1000 MG, OTHER
     Route: 042
     Dates: start: 20070927
  2. ALIMTA [Suspect]
     Dosage: 975 MG, OTHER
     Route: 042
     Dates: start: 20071018, end: 20071018
  3. ISOPTIN [Concomitant]
     Indication: ATRIAL FIBRILLATION
     Dosage: 160 MG, DAILY (1/D)
     Route: 048
     Dates: start: 20070927, end: 20070927
  4. ISOPTIN [Concomitant]
     Dosage: 120 MG, DAILY (1/D)
     Route: 048
     Dates: start: 20070928, end: 20070928
  5. KERLONE [Concomitant]
     Indication: HYPERTENSION
     Dosage: UNK, UNKNOWN
     Route: 065
  6. FLECAINIDE ACETATE [Concomitant]
     Indication: ATRIAL FIBRILLATION
     Dosage: 150 MG, DAILY (1/D)
     Route: 065
     Dates: start: 20070901

REACTIONS (1)
  - CYTOLYTIC HEPATITIS [None]
